FAERS Safety Report 22098066 (Version 1)
Quarter: 2023Q1

REPORT INFORMATION
  Report Type: Report from Study
  Country: CA (occurrence: CA)
  Receive Date: 20230315
  Receipt Date: 20230315
  Transmission Date: 20230417
  Serious: Yes (Hospitalization)
  Sender: FDA-Public Use
  Company Number: CA-SAMSUNG BIOEPIS-SB-2023-06816

PATIENT
  Age: 58 Year
  Sex: Female

DRUGS (1)
  1. ETANERCEPT [Suspect]
     Active Substance: ETANERCEPT
     Indication: Ankylosing spondylitis
     Dosage: 50 MG/ML;
     Route: 065
     Dates: start: 20220404

REACTIONS (4)
  - Bronchitis [Unknown]
  - COVID-19 [Unknown]
  - Pneumonia [Not Recovered/Not Resolved]
  - Pleural effusion [Unknown]
